FAERS Safety Report 6554793-8 (Version None)
Quarter: 2010Q1

REPORT INFORMATION
  Report Type: 
  Country: None (occurrence: None)
  Receive Date: 20100127
  Receipt Date: 20100118
  Transmission Date: 20100710
  Serious: Yes (Hospitalization)
  Sender: FDA-Public Use
  Company Number: FR-AMGEN-UK386290

PATIENT
  Age: 88 Year
  Sex: Female

DRUGS (5)
  1. NPLATE [Suspect]
     Route: 058
     Dates: start: 20080101, end: 20091130
  2. LANTUS [Concomitant]
     Route: 058
  3. APROVEL [Concomitant]
     Route: 048
  4. NEXIUM [Concomitant]
     Route: 048
  5. OROCAL D3 [Concomitant]
     Route: 048

REACTIONS (1)
  - PULMONARY EMBOLISM [None]
